FAERS Safety Report 8942745 (Version 2)
Quarter: 2013Q2

REPORT INFORMATION
  Report Type: Spontaneous
  Country: US (occurrence: US)
  Receive Date: 20121204
  Receipt Date: 20130402
  Transmission Date: 20140414
  Serious: Yes (Hospitalization)
  Sender: FDA-Public Use
  Company Number: US-BAYER-2012-126066

PATIENT
  Age: 30 Year
  Sex: Female
  Weight: 136.5 kg

DRUGS (15)
  1. YAZ [Suspect]
     Indication: ACNE
     Dosage: UNK
     Dates: start: 2007, end: 2008
  2. CYMBALTA [Concomitant]
     Dosage: 30 MG, QD
     Route: 048
  3. CYMBALTA [Concomitant]
     Dosage: 60 MG, QD
     Route: 048
  4. THERMACARE HEATWRAPS [Concomitant]
     Dosage: UNK; FOLLOW PACKAGE DIRECTIONS
  5. THERMACARE HEATWRAPS [Concomitant]
     Dosage: UNK; USE AS DIRECTED
  6. ORPHENADRINE CITRATE [Concomitant]
     Dosage: 100 MG, TID
     Route: 048
  7. HYDROCODONE/ACETAMINOPHEN [Concomitant]
     Indication: BREAKTHROUGH PAIN
     Dosage: UNK UNK, BID
     Route: 048
  8. OXYCONTIN [Concomitant]
     Dosage: 40 MG, BID
     Route: 048
  9. OXYCONTIN [Concomitant]
  10. GABAPENTIN [Concomitant]
     Dosage: 400 MG, TID
     Route: 048
  11. IBUPROFEN [Concomitant]
     Indication: PAIN
     Dosage: 100MG/5 ML ; 6 TEASPOONFUL^S EVERY 6 HOURS
     Route: 048
  12. VENTOLIN HFA [Concomitant]
     Indication: WHEEZING
     Dosage: UNK; INHALE 2 PUFFS EVERY 4 HOURS
     Route: 048
  13. PSEUDOEPHEDRINE [Concomitant]
     Indication: NASAL CONGESTION
     Dosage: 30 MG, 2 TABLETS EVERY 6 HOURS PRN
     Route: 048
  14. LORTAB [Concomitant]
  15. NEURONTIN [Concomitant]

REACTIONS (5)
  - Gallbladder disorder [None]
  - Cholecystitis chronic [None]
  - Injury [None]
  - Pain [None]
  - Pain [None]
